FAERS Safety Report 9548733 (Version 1)
Quarter: 2013Q3

REPORT INFORMATION
  Report Type: Spontaneous
  Country: US (occurrence: None)
  Receive Date: 20130923
  Receipt Date: 20130923
  Transmission Date: 20140515
  Serious: Yes (Disabling, Other)
  Sender: FDA-Public Use
  Company Number: None

PATIENT
  Age: 45 Year
  Sex: Male

DRUGS (1)
  1. LIPITOR [Suspect]
     Dosage: ONCE DAILY

REACTIONS (2)
  - Osteonecrosis [None]
  - Arthralgia [None]
